FAERS Safety Report 21090924 (Version 1)
Quarter: 2022Q3

REPORT INFORMATION
  Report Type: Spontaneous
  Country: FR (occurrence: FR)
  Receive Date: 20220716
  Receipt Date: 20220716
  Transmission Date: 20221027
  Serious: Yes (Death)
  Sender: FDA-Public Use
  Company Number: None

PATIENT
  Age: 57 Year
  Sex: Male

DRUGS (4)
  1. ZOPICLONE [Suspect]
     Active Substance: ZOPICLONE
     Indication: Product used for unknown indication
     Dosage: UNKNOWN, THERAPY START DATE : ASKU
     Dates: end: 202102
  2. FENTANYL HYDROCHLORIDE [Suspect]
     Active Substance: FENTANYL HYDROCHLORIDE
     Indication: Product used for unknown indication
     Dosage: UNKNOWN, THERAPY START DATE : ASKU
     Route: 065
     Dates: end: 202102
  3. OXAZEPAM [Suspect]
     Active Substance: OXAZEPAM
     Indication: Product used for unknown indication
     Dosage: UNKNOWN, THERAPY START DATE : ASKU
     Dates: end: 202102
  4. MORPHINE [Suspect]
     Active Substance: MORPHINE
     Indication: Product used for unknown indication
     Dosage: UNKNOWN, THERAPY START DATE : ASKU
     Dates: end: 202102

REACTIONS (1)
  - Poisoning [Fatal]

NARRATIVE: CASE EVENT DATE: 20210201
